FAERS Safety Report 9649415 (Version 2)
Quarter: 2013Q4

REPORT INFORMATION
  Report Type: Spontaneous
  Country: IT (occurrence: IT)
  Receive Date: 20131028
  Receipt Date: 20131226
  Transmission Date: 20140711
  Serious: Yes (Hospitalization)
  Sender: FDA-Public Use
  Company Number: CHNY2013IT002316

PATIENT
  Age: 52 Year
  Sex: Female

DRUGS (4)
  1. IBUPROFEN [Suspect]
     Indication: DENTAL CARE
     Dosage: 1 DF, ONCE/SINGLE
     Route: 048
     Dates: start: 20130911, end: 20130911
  2. IBUPROFEN [Suspect]
     Indication: OFF LABEL USE
  3. COVERLAM [Concomitant]
     Indication: HYPERTENSION
     Dosage: 15 MG, UNK
     Route: 048
  4. KLAIRA [Concomitant]
     Dosage: UNK, UNK

REACTIONS (4)
  - Hyperaemia [Recovered/Resolved]
  - Lip oedema [Recovered/Resolved]
  - Pharyngeal oedema [Recovered/Resolved]
  - Periorbital oedema [Recovered/Resolved]
